FAERS Safety Report 10384265 (Version 1)
Quarter: 2014Q1

REPORT INFORMATION
  Report Type: Spontaneous
  Country: US (occurrence: None)
  Receive Date: 20140306
  Receipt Date: 20140306
  Transmission Date: 20141002
  Serious: Yes (Other)
  Sender: FDA-Public Use
  Company Number: 163-21880-13051528

PATIENT
  Age: 86 Year
  Sex: Female

DRUGS (9)
  1. REVLIMIB (LENALIDOMIDE) (25 MILLIGRAM, CAPSULES) [Suspect]
     Indication: PLASMA CELL MYELOMA
     Route: 048
     Dates: start: 20130416, end: 20130430
  2. SYNTHROID (LEVOTHYROXINE SODIUM) [Concomitant]
  3. SIMVASTATIN [Concomitant]
  4. ATENOLOL [Concomitant]
  5. ASPIRIN (ACETYLSALICYLIC ACID) [Concomitant]
  6. PYRIDOXIN (PYRIDOXIN HYDROCHLORIDE) [Concomitant]
  7. VICODIN [Concomitant]
  8. VELCADE (BORTEZOMIB) [Concomitant]
  9. DEXAMETHASONE [Concomitant]

REACTIONS (4)
  - Blood creatinine increased [None]
  - Plasma cell myeloma [None]
  - Dehydration [None]
  - Back pain [None]
